FAERS Safety Report 6665398-2 (Version None)
Quarter: 2010Q2

REPORT INFORMATION
  Report Type: 
  Country: None (occurrence: None)
  Receive Date: 20100402
  Receipt Date: 20100323
  Transmission Date: 20101027
  Serious: Yes (Other)
  Sender: FDA-Public Use
  Company Number: GB-PFIZER INC-2010041516

PATIENT
  Age: 32 Year
  Sex: Female

DRUGS (1)
  1. VIRACEPT [Suspect]
     Indication: PROPHYLAXIS
     Dosage: 2500MG /DAY
     Route: 048
     Dates: start: 20070501, end: 20070515

REACTIONS (4)
  - HYPOTHYROIDISM [None]
  - LICHEN PLANUS [None]
  - SUPPRESSED LACTATION [None]
  - TUBERCULOSIS [None]
